FAERS Safety Report 7363675-3 (Version None)
Quarter: 2011Q1

REPORT INFORMATION
  Report Type: 
  Country: None (occurrence: None)
  Receive Date: 20110321
  Receipt Date: 20110308
  Transmission Date: 20110831
  Serious: Yes (Other)
  Sender: FDA-Public Use
  Company Number: US-JNJFOC-20110305218

PATIENT
  Age: 68 Year
  Sex: Female
  Weight: 58.97 kg

DRUGS (4)
  1. MOTRIN IB [Suspect]
     Route: 048
  2. MOTRIN IB [Suspect]
     Indication: BACK PAIN
     Dosage: 1 CAPLET EVERYDAY
     Route: 048
  3. SIMVASTATIN [Concomitant]
     Indication: BLOOD CHOLESTEROL
     Route: 048
  4. ASPIRIN [Suspect]
     Indication: CARDIAC DISORDER
     Dosage: 1 PER DAY, ALSO REPORTED AS TWICE A DAY
     Route: 048

REACTIONS (1)
  - RECTAL HAEMORRHAGE [None]
